FAERS Safety Report 5138113-1 (Version None)
Quarter: 2006Q4

REPORT INFORMATION
  Report Type: 
  Country: None (occurrence: None)
  Receive Date: 20061030
  Receipt Date: 20060417
  Transmission Date: 20070319
  Serious: No
  Sender: FDA-Public Use
  Company Number: US-GLAXOSMITHKLINE-A0601953A

PATIENT
  Age: 79 Year
  Sex: Female

DRUGS (2)
  1. ADVAIR HFA [Suspect]
     Indication: ASTHMA
     Dosage: 1PUFF TWICE PER DAY
     Route: 055
     Dates: start: 20050301, end: 20050407
  2. ASACOL [Concomitant]

REACTIONS (4)
  - APHONIA [None]
  - CANDIDIASIS [None]
  - DYSPHAGIA [None]
  - PHARYNGOLARYNGEAL PAIN [None]
